FAERS Safety Report 13455961 (Version 5)
Quarter: 2017Q4

REPORT INFORMATION
  Report Type: Spontaneous
  Country: US (occurrence: US)
  Receive Date: 20170419
  Receipt Date: 20171010
  Transmission Date: 20180320
  Serious: Yes (Hospitalization, Other)
  Sender: FDA-Public Use
  Company Number: US-009507513-1704USA007678

PATIENT
  Sex: Female
  Weight: 126.53 kg

DRUGS (5)
  1. NUVARING [Suspect]
     Active Substance: ETHINYL ESTRADIOL\ETONOGESTREL
     Dosage: 1 DF, UNK
     Route: 067
     Dates: start: 201303, end: 201405
  2. ORTHO EVRA [Suspect]
     Active Substance: ETHINYL ESTRADIOL\NORELGESTROMIN
     Indication: CONTRACEPTION
     Dosage: 20 MCG-150 MCG/24 HR FILM, EXTENDED RELEASE, QW FOR 3 WEEKS
     Route: 062
     Dates: start: 20090426
  3. NUVARING [Suspect]
     Active Substance: ETHINYL ESTRADIOL\ETONOGESTREL
     Indication: MENSTRUATION IRREGULAR
     Dosage: 1 DF, UNK
     Route: 067
     Dates: start: 20120123, end: 201210
  4. SINGULAIR [Concomitant]
     Active Substance: MONTELUKAST SODIUM
     Indication: PRODUCT USED FOR UNKNOWN INDICATION
     Route: 048
  5. NUVARING [Suspect]
     Active Substance: ETHINYL ESTRADIOL\ETONOGESTREL
     Indication: CONTRACEPTION
     Dosage: 1 DF, UNK
     Route: 067
     Dates: start: 200901, end: 20090424

REACTIONS (30)
  - Cervical dysplasia [Unknown]
  - Hepatomegaly [Unknown]
  - Pulmonary mass [Unknown]
  - Vulvovaginal pain [Unknown]
  - Upper respiratory tract infection [Unknown]
  - Sterilisation [Unknown]
  - Menorrhagia [Recovered/Resolved]
  - Incorrect drug administration duration [Recovered/Resolved]
  - Inappropriate schedule of drug administration [Recovered/Resolved]
  - Incorrect drug administration duration [Recovered/Resolved]
  - Dysfunctional uterine bleeding [Unknown]
  - Maternal exposure before pregnancy [Recovered/Resolved]
  - Pulmonary embolism [Unknown]
  - Swelling [Unknown]
  - Pain [Unknown]
  - Muscle spasms [Unknown]
  - Blood pressure increased [Unknown]
  - Cardiac failure congestive [Unknown]
  - Diarrhoea [Recovered/Resolved]
  - Vaginal discharge [Unknown]
  - Anogenital warts [Unknown]
  - Cholecystectomy [Unknown]
  - Abdominal pain [Unknown]
  - Electrocardiogram T wave abnormal [Recovered/Resolved]
  - Vomiting [Recovered/Resolved]
  - Nausea [Recovered/Resolved]
  - Abortion induced [Recovered/Resolved]
  - Hypokalaemia [Unknown]
  - Cardiomegaly [Unknown]
  - Hepatic steatosis [Unknown]

NARRATIVE: CASE EVENT DATE: 20090217
